FAERS Safety Report 6907374-8 (Version None)
Quarter: 2010Q3

REPORT INFORMATION
  Report Type: 
  Country: None (occurrence: None)
  Receive Date: 20100802
  Receipt Date: 20100723
  Transmission Date: 20110219
  Serious: Yes (Death, Hospitalization)
  Sender: FDA-Public Use
  Company Number: 201007AGG00941

PATIENT
  Age: 64 Year
  Sex: Male

DRUGS (8)
  1. TIROFIBAN HYDROCHLORIDE (AGGRASTAT (TIROFIBAN HCL)) [Suspect]
     Indication: ACUTE MYOCARDIAL INFARCTION
     Dosage: 12.5MG/DAILY; INTRAVENOUS (NOT OTHERWISE SPECIFIED)
     Route: 042
     Dates: start: 20100216, end: 20100217
  2. CLEXAN [Concomitant]
  3. FLECTADOL [Concomitant]
  4. ESOPRAL [Concomitant]
  5. PLASIL [Concomitant]
  6. PLAVIX [Concomitant]
  7. RAMIPRIL [Concomitant]
  8. METOPROLOL [Concomitant]

REACTIONS (5)
  - ACUTE MYOCARDIAL INFARCTION [None]
  - MOTOR DYSFUNCTION [None]
  - SOMNOLENCE [None]
  - SUBARACHNOID HAEMORRHAGE [None]
  - VISUAL IMPAIRMENT [None]
